FAERS Safety Report 6256127-5 (Version None)
Quarter: 2009Q3

REPORT INFORMATION
  Report Type: 
  Country: None (occurrence: None)
  Receive Date: 20090706
  Receipt Date: 20090624
  Transmission Date: 20100115
  Serious: Yes (Other)
  Sender: FDA-Public Use
  Company Number: PHBS2006SE19409

PATIENT
  Sex: Female

DRUGS (10)
  1. AREDIA [Suspect]
     Indication: HYPERCALCAEMIA
     Dosage: UNK
     Route: 042
     Dates: start: 20010901, end: 20050801
  2. AREDIA [Suspect]
     Indication: MULTIPLE MYELOMA
  3. ZOMETA [Suspect]
     Indication: HYPERCALCAEMIA
     Route: 042
     Dates: start: 20051001, end: 20060301
  4. ZOMETA [Suspect]
     Indication: MULTIPLE MYELOMA
  5. IMPUGAN [Concomitant]
     Route: 048
  6. MINDIAB [Concomitant]
     Route: 048
  7. KALIUM RETARD [Concomitant]
     Route: 048
  8. EMGESAN [Concomitant]
     Route: 048
  9. PREDNISOLONE [Concomitant]
     Route: 048
  10. LANTUS [Concomitant]

REACTIONS (3)
  - FRACTURE [None]
  - OSTEONECROSIS [None]
  - SURGERY [None]
